FAERS Safety Report 4650657-5 (Version None)
Quarter: 2005Q2

REPORT INFORMATION
  Report Type: 
  Country: None (occurrence: None)
  Receive Date: 20050331
  Receipt Date: 20050121
  Transmission Date: 20051028
  Serious: No
  Sender: FDA-Public Use
  Company Number: 05P-163-0287604-00

PATIENT
  Age: 57 Year
  Sex: Male

DRUGS (9)
  1. HUMIRA [Suspect]
     Indication: RHEUMATOID ARTHRITIS
     Dosage: 40 MG, 1 IN 2 WK, SUBCUTANEOUS
     Route: 058
     Dates: start: 20050121
  2. METHOTREXATE [Concomitant]
  3. HYDROCORTISONE [Concomitant]
  4. FLUDROCORTISONE ACETATE [Concomitant]
  5. LEVOTHYROXINE SODIUM [Concomitant]
  6. FENOFIBRATE [Concomitant]
  7. ZOCOR [Concomitant]
  8. LORAZEPAM [Concomitant]
  9. OXYCOCET [Concomitant]

REACTIONS (1)
  - NAUSEA [None]
